FAERS Safety Report 13118547 (Version 1)
Quarter: 2017Q1

REPORT INFORMATION
  Report Type: Spontaneous
  Country: AU (occurrence: AU)
  Receive Date: 20170116
  Receipt Date: 20170116
  Transmission Date: 20170428
  Serious: Yes (Hospitalization)
  Sender: FDA-Public Use
  Company Number: AU-GE HEALTHCARE MEDICAL DIAGNOSTICS-OMPQ-PR-1701S-0028

PATIENT
  Age: 51 Year
  Sex: Male
  Weight: 80 kg

DRUGS (2)
  1. OMNIPAQUE [Suspect]
     Active Substance: IOHEXOL
     Indication: INVESTIGATION
     Route: 042
     Dates: start: 20170109, end: 20170109
  2. OMNIPAQUE [Suspect]
     Active Substance: IOHEXOL
     Indication: DIAGNOSTIC PROCEDURE

REACTIONS (6)
  - Hyporesponsive to stimuli [Recovering/Resolving]
  - Blood pressure decreased [Recovering/Resolving]
  - Confusional state [Recovering/Resolving]
  - Hypersensitivity [Recovering/Resolving]
  - Dizziness [Recovering/Resolving]
  - Hyperhidrosis [Recovering/Resolving]

NARRATIVE: CASE EVENT DATE: 20170109
